FAERS Safety Report 6162735-2 (Version None)
Quarter: 2009Q2

REPORT INFORMATION
  Report Type: 
  Country: None (occurrence: None)
  Receive Date: 20090421
  Receipt Date: 20080416
  Transmission Date: 20091009
  Serious: No
  Sender: FDA-Public Use
  Company Number: US-ASTRAZENECA-2008UW07832

PATIENT
  Age: 89 Year
  Sex: Female

DRUGS (1)
  1. METOPROLOL SUCCINATE [Suspect]
     Indication: HEART VALVE INCOMPETENCE
     Route: 048
     Dates: start: 20070701

REACTIONS (3)
  - ABNORMAL DREAMS [None]
  - POOR QUALITY SLEEP [None]
  - SLEEP DISORDER [None]
